FAERS Safety Report 20535720 (Version 1)
Quarter: 2022Q1

REPORT INFORMATION
  Report Type: Spontaneous
  Country: CA (occurrence: CA)
  Receive Date: 20220302
  Receipt Date: 20220302
  Transmission Date: 20220423
  Serious: Yes (Other)
  Sender: FDA-Public Use
  Company Number: CA-JNJFOC-20211054023

PATIENT
  Age: 68 Year
  Sex: Female
  Weight: 60 kg

DRUGS (4)
  1. REMICADE [Suspect]
     Active Substance: INFLIXIMAB
     Indication: Colitis ulcerative
     Route: 042
  2. CALCIUM CARBONATE\CHOLECALCIFEROL [Concomitant]
     Active Substance: CALCIUM CARBONATE\CHOLECALCIFEROL
     Route: 065
  3. CYMBALTA [Concomitant]
     Active Substance: DULOXETINE HYDROCHLORIDE
     Route: 065
  4. HYDROCORTISONE [Concomitant]
     Active Substance: HYDROCORTISONE
     Route: 065

REACTIONS (6)
  - Haematochezia [Recovered/Resolved]
  - Photosensitivity reaction [Recovered/Resolved]
  - Alopecia [Recovered/Resolved]
  - Back pain [Recovered/Resolved]
  - Condition aggravated [Recovered/Resolved]
  - Rash macular [Recovered/Resolved]
